FAERS Safety Report 4340512-2 (Version None)
Quarter: 2004Q2

REPORT INFORMATION
  Report Type: 
  Country: None (occurrence: None)
  Receive Date: 20040414
  Receipt Date: 20040331
  Transmission Date: 20050107
  Serious: Yes (Other)
  Sender: FDA-Public Use
  Company Number: 2004AP01105

PATIENT
  Age: 67 Year
  Sex: Female

DRUGS (4)
  1. IRESSA [Suspect]
     Indication: LUNG ADENOCARCINOMA
     Dosage: 250 MG DAILY PO
     Route: 048
     Dates: start: 20030702, end: 20030729
  2. IRESSA [Suspect]
     Indication: NON-SMALL CELL LUNG CANCER
     Dosage: 250 MG DAILY PO
     Route: 048
     Dates: start: 20030702, end: 20030729
  3. CISPLATIN [Concomitant]
  4. IRINOTECAN [Concomitant]

REACTIONS (2)
  - ATELECTASIS [None]
  - NEOPLASM PROGRESSION [None]
